FAERS Safety Report 9843947 (Version 1)
Quarter: 2013Q4

REPORT INFORMATION
  Report Type: Spontaneous
  Country: US (occurrence: None)
  Receive Date: 20131223
  Receipt Date: 20131223
  Transmission Date: 20140711
  Serious: No
  Sender: FDA-Public Use
  Company Number: 1000049590

PATIENT
  Age: 82 None
  Sex: Male

DRUGS (2)
  1. LINZESS (LINACLOTIDE) (290 MICROGRAM, CAPSULES) [Suspect]
     Indication: IRRITABLE BOWEL SYNDROME
     Dosage: 290 MCG (290 MCG, 1 IN 1 D), ORAL
     Route: 048
     Dates: start: 20131002
  2. STOOL SOFTENER NOS (STOOL SOFTENER NOS) (STOOL SOFTENER NOS) [Concomitant]

REACTIONS (1)
  - Somnolence [None]
